FAERS Safety Report 18249129 (Version 2)
Quarter: 2020Q3

REPORT INFORMATION
  Report Type: Spontaneous
  Country: US (occurrence: US)
  Receive Date: 20200909
  Receipt Date: 20200915
  Transmission Date: 20201103
  Serious: No
  Sender: FDA-Public Use
  Company Number: US-BIOGEN-2019BI00785671

PATIENT
  Sex: Male

DRUGS (1)
  1. TECFIDERA [Suspect]
     Active Substance: DIMETHYL FUMARATE
     Indication: MULTIPLE SCLEROSIS
     Route: 048
     Dates: start: 20190722, end: 20191101

REACTIONS (5)
  - Hot flush [Recovered/Resolved]
  - Pain in extremity [Unknown]
  - Flushing [Unknown]
  - Illness [Unknown]
  - Headache [Unknown]
